FAERS Safety Report 9189698 (Version 2)
Quarter: 2013Q2

REPORT INFORMATION
  Report Type: Spontaneous
  Country: US (occurrence: None)
  Receive Date: 20120703
  Receipt Date: 20121031
  Transmission Date: 20140414
  Serious: Yes (Other)
  Sender: FDA-Public Use
  Company Number: PHEH2012US007338

PATIENT
  Age: 41 Year
  Sex: Male

DRUGS (8)
  1. GILENYA [Suspect]
     Indication: MULTIPLE SCLEROSIS
     Route: 048
     Dates: start: 201108
  2. CITALOPRAM [Concomitant]
  3. VESICARE [Concomitant]
  4. CIALIS [Concomitant]
  5. BACLOFEN [Concomitant]
  6. VICODIN [Concomitant]
  7. CELEXA [Concomitant]
  8. WELLBURTRIN [Concomitant]

REACTIONS (1)
  - Depression [None]
